FAERS Safety Report 25353721 (Version 1)
Quarter: 2025Q2

REPORT INFORMATION
  Report Type: Spontaneous
  Country: US (occurrence: None)
  Receive Date: 20250523
  Receipt Date: 20250523
  Transmission Date: 20250717
  Serious: Yes (Other)
  Sender: FDA-CTU
  Company Number: None

PATIENT
  Age: 65 Year
  Sex: Male
  Weight: 94.5 kg

DRUGS (5)
  1. CETIRIZINE HYDROCHLORIDE [Suspect]
     Active Substance: CETIRIZINE HYDROCHLORIDE
     Indication: Multiple allergies
     Dosage: 365 TABLET(S) DAILY ORAL
     Route: 048
     Dates: start: 20240228, end: 20250508
  2. CARVEDILOL [Concomitant]
     Active Substance: CARVEDILOL
  3. ATORVASTATIN [Concomitant]
     Active Substance: ATORVASTATIN
  4. AMLODIPINE [Concomitant]
     Active Substance: AMLODIPINE BESYLATE
  5. ALLERC-TEC [Concomitant]

REACTIONS (3)
  - Product use issue [None]
  - Product dose omission in error [None]
  - Rash pruritic [None]

NARRATIVE: CASE EVENT DATE: 20250509
